FAERS Safety Report 15789889 (Version 1)
Quarter: 2019Q1

REPORT INFORMATION
  Report Type: Spontaneous
  Country: US (occurrence: US)
  Receive Date: 20190104
  Receipt Date: 20190104
  Transmission Date: 20190417
  Serious: Yes (Other)
  Sender: FDA-Public Use
  Company Number: US-ASTRAZENECA-2019SE00379

PATIENT

DRUGS (4)
  1. LABETALOL [Suspect]
     Active Substance: LABETALOL\LABETALOL HYDROCHLORIDE
     Route: 064
  2. BUPROPION. [Suspect]
     Active Substance: BUPROPION
     Route: 064
  3. QUETIAPINE. [Suspect]
     Active Substance: QUETIAPINE
     Route: 064
  4. ARIPIPRAZOLE. [Suspect]
     Active Substance: ARIPIPRAZOLE
     Route: 064

REACTIONS (2)
  - Transposition of the great vessels [Unknown]
  - Foetal exposure during pregnancy [Unknown]
